FAERS Safety Report 18270843 (Version 3)
Quarter: 2021Q1

REPORT INFORMATION
  Report Type: Report from Study
  Country: KR (occurrence: KR)
  Receive Date: 20200915
  Receipt Date: 20210305
  Transmission Date: 20210419
  Serious: No
  Sender: FDA-Public Use
  Company Number: KR-JNJFOC-A-CH2020-204909

PATIENT
  Age: 33 Year
  Sex: Female
  Weight: 57 kg

DRUGS (8)
  1. AMBRISENTAN [Concomitant]
     Active Substance: AMBRISENTAN
     Indication: PULMONARY ARTERIAL HYPERTENSION
     Dosage: 5 MG
     Route: 048
     Dates: start: 20171113
  2. UPTRAVI [Suspect]
     Active Substance: SELEXIPAG
     Indication: PULMONARY ARTERIAL HYPERTENSION
     Dosage: 400 MCG
     Route: 048
     Dates: start: 20180220, end: 20180325
  3. UPTRAVI [Suspect]
     Active Substance: SELEXIPAG
     Dosage: 800 MCG
     Route: 048
     Dates: start: 20180327, end: 20180424
  4. UPTRAVI [Suspect]
     Active Substance: SELEXIPAG
     Dosage: 400/800 MCG
     Route: 048
     Dates: start: 20180425, end: 20180425
  5. UPTRAVI [Suspect]
     Active Substance: SELEXIPAG
     Dosage: 200/400 MCG
     Route: 048
     Dates: start: 20180326, end: 20180326
  6. UPTRAVI [Suspect]
     Active Substance: SELEXIPAG
     Dosage: 800/1200 MCG
     Route: 048
     Dates: start: 20180820, end: 20180820
  7. UPTRAVI [Suspect]
     Active Substance: SELEXIPAG
     Dosage: 200 MCG
     Route: 048
     Dates: start: 20180219, end: 20180219
  8. UPTRAVI [Suspect]
     Active Substance: SELEXIPAG
     Dosage: 1600 MCG
     Route: 048
     Dates: start: 20180426, end: 20180819

REACTIONS (1)
  - Leukopenia [Not Recovered/Not Resolved]

NARRATIVE: CASE EVENT DATE: 20180301
